FAERS Safety Report 5464106-0 (Version None)
Quarter: 2007Q3

REPORT INFORMATION
  Report Type: 
  Country: None (occurrence: None)
  Receive Date: 20070921
  Receipt Date: 20070911
  Transmission Date: 20080115
  Serious: Yes (Hospitalization)
  Sender: FDA-Public Use
  Company Number: CY-AMGEN-US243985

PATIENT
  Sex: Female
  Weight: 57 kg

DRUGS (2)
  1. ENBREL [Suspect]
     Indication: ARTHRITIS ENTEROPATHIC
     Route: 058
     Dates: start: 20070822, end: 20070910
  2. ENBREL [Suspect]
     Indication: POLYARTHRITIS

REACTIONS (2)
  - RASH [None]
  - VOMITING [None]
